FAERS Safety Report 7320108-0 (Version None)
Quarter: 2011Q1

REPORT INFORMATION
  Report Type: 
  Country: None (occurrence: None)
  Receive Date: 20110228
  Receipt Date: 20101208
  Transmission Date: 20110831
  Serious: No
  Sender: FDA-Public Use
  Company Number: US-BAYER-2011-000665

PATIENT
  Sex: Female
  Weight: 48 kg

DRUGS (1)
  1. ALEVE [Suspect]
     Indication: MYALGIA
     Dosage: 2 DF, TID
     Dates: start: 20101207

REACTIONS (1)
  - NO ADVERSE EVENT [None]
